FAERS Safety Report 24591827 (Version 1)
Quarter: 2024Q4

REPORT INFORMATION
  Report Type: Spontaneous
  Country: JP (occurrence: JP)
  Receive Date: 20241108
  Receipt Date: 20241108
  Transmission Date: 20250114
  Serious: Yes (Hospitalization, Other)
  Sender: EXELIXIS
  Company Number: JP-ONO-2024JP016929

PATIENT
  Age: 76 Year
  Sex: Male

DRUGS (6)
  1. CABOMETYX [Suspect]
     Active Substance: CABOZANTINIB S-MALATE
     Indication: Metastatic renal cell carcinoma
     Route: 048
     Dates: start: 20230912, end: 20240709
  2. OPDIVO [Suspect]
     Active Substance: NIVOLUMAB
     Indication: Metastatic renal cell carcinoma
     Route: 041
     Dates: start: 20230912, end: 20240709
  3. AMLODIPINE [Concomitant]
     Active Substance: AMLODIPINE BESYLATE
     Indication: Product used for unknown indication
     Dosage: UNK
  4. HARNAL [Concomitant]
     Active Substance: TAMSULOSIN HYDROCHLORIDE
     Indication: Product used for unknown indication
     Dosage: UNK
  5. BACLOFEN [Concomitant]
     Active Substance: BACLOFEN
     Indication: Product used for unknown indication
     Dosage: UNK
  6. LEVETIRACETAM [Concomitant]
     Active Substance: LEVETIRACETAM
     Indication: Product used for unknown indication
     Dosage: UNK

REACTIONS (15)
  - Protein-losing gastroenteropathy [Recovered/Resolved]
  - Barrett^s oesophagus [Unknown]
  - Inflammatory bowel disease [Unknown]
  - Large intestinal stenosis [Unknown]
  - Hypokalaemia [Unknown]
  - Hypoalbuminaemia [Recovered/Resolved]
  - Hiatus hernia [Unknown]
  - Gastric polyps [Unknown]
  - Blood cholesterol decreased [Unknown]
  - Gastrooesophageal reflux disease [Unknown]
  - C-reactive protein increased [Unknown]
  - Blood creatine phosphokinase increased [Unknown]
  - Pyrexia [Not Recovered/Not Resolved]
  - Occult blood positive [Unknown]
  - Anaemia [Unknown]

NARRATIVE: CASE EVENT DATE: 20240806
